FAERS Safety Report 26006000 (Version 1)
Quarter: 2025Q4

REPORT INFORMATION
  Report Type: Spontaneous
  Country: KR (occurrence: KR)
  Receive Date: 20251106
  Receipt Date: 20251106
  Transmission Date: 20260119
  Serious: Yes (Other)
  Sender: Kenvue
  Company Number: KR-KENVUE-20251013514

PATIENT

DRUGS (5)
  1. TYLENOL 8HR [Suspect]
     Active Substance: ACETAMINOPHEN
     Indication: Product used for unknown indication
     Dosage: 1 DOSAGE FORM, 0.33 TIME A DAY (1{DF}/0.333DAY)
     Route: 065
     Dates: start: 20231122
  2. CHLORPHENIRAMINE MALEATE\DIHYDROCODEINE BITARTRATE\GUAIFENESIN\METHYLE [Suspect]
     Active Substance: CHLORPHENIRAMINE MALEATE\DIHYDROCODEINE BITARTRATE\GUAIFENESIN\METHYLEPHEDRINE HYDROCHLORIDE, (+/-)
     Indication: Product used for unknown indication
     Dosage: 1 DOSAGE FORM, 0.33 TIME A DAY (1{DF} / 0.333DAY)
     Route: 065
     Dates: start: 20231122
  3. AMMONIUM CHLORIDE\CHLORPHENIRAMINE MALEATE\DIHYDROCODEINE BITARTRATE\M [Suspect]
     Active Substance: AMMONIUM CHLORIDE\CHLORPHENIRAMINE MALEATE\DIHYDROCODEINE BITARTRATE\METHYLEPHEDRINE HYDROCHLORIDE,
     Indication: Product used for unknown indication
     Dosage: 1 DOSAGE FORM, 0.33 TIME A DAY (1{DF} / 0.333DAY)
     Route: 065
     Dates: start: 20231122
  4. PSEUDOEPHEDRINE HYDROCHLORIDE [Suspect]
     Active Substance: PSEUDOEPHEDRINE HYDROCHLORIDE
     Indication: Product used for unknown indication
     Dosage: 1 DOSAGE FORM, 0.33 TIME A DAY (1{DF} / 0.333DAY)
     Route: 065
     Dates: start: 20231122
  5. ALMAGATE [Suspect]
     Active Substance: ALMAGATE
     Indication: Product used for unknown indication
     Dosage: 1 DOSAGE FORM, 0.33 TIME A DAY (1{DF} / 0.333DAY)
     Route: 065
     Dates: start: 20231122

REACTIONS (3)
  - Tongue paralysis [Unknown]
  - Dry mouth [Unknown]
  - Dysgeusia [Unknown]

NARRATIVE: CASE EVENT DATE: 20231122
